FAERS Safety Report 25860416 (Version 1)
Quarter: 2025Q3

REPORT INFORMATION
  Report Type: Spontaneous
  Country: CA (occurrence: CA)
  Receive Date: 20250929
  Receipt Date: 20250929
  Transmission Date: 20251020
  Serious: Yes (Other)
  Sender: PFIZER
  Company Number: CA-PFIZER INC-202500096470

PATIENT
  Age: 72 Year
  Sex: Female

DRUGS (19)
  1. METHYLPREDNISOLONE [Suspect]
     Active Substance: METHYLPREDNISOLONE
     Indication: Premedication
  2. PREDNISOLONE [Suspect]
     Active Substance: PREDNISOLONE
     Indication: Premedication
  3. TRUXIMA [Suspect]
     Active Substance: RITUXIMAB-ABBS
     Indication: Rheumatoid arthritis
     Route: 042
  4. ACETAMINOPHEN [Concomitant]
     Active Substance: ACETAMINOPHEN
     Indication: Premedication
     Route: 048
  5. BENADRYL [Concomitant]
     Active Substance: DIPHENHYDRAMINE HYDROCHLORIDE
     Indication: Premedication
     Route: 048
  6. HYDROCHLOROTHIAZIDE [Concomitant]
     Active Substance: HYDROCHLOROTHIAZIDE
     Indication: Hypertension
     Route: 048
  7. LOSEC [Concomitant]
     Active Substance: OMEPRAZOLE
     Indication: Gastric ulcer
     Route: 048
  8. METHYLPREDNISOLONE SODIUM SUCCINATE [Concomitant]
     Active Substance: METHYLPREDNISOLONE SODIUM SUCCINATE
     Indication: Premedication
     Route: 042
  9. METHYLPREDNISOLONE SODIUM SUCCINATE [Concomitant]
     Active Substance: METHYLPREDNISOLONE SODIUM SUCCINATE
     Route: 042
  10. PERINDOPRIL [Concomitant]
     Active Substance: PERINDOPRIL
     Indication: Hypertension
     Route: 048
  11. PREDNISONE [Concomitant]
     Active Substance: PREDNISONE
     Indication: Vasculitis
  12. SYNTHROID [Concomitant]
     Active Substance: LEVOTHYROXINE SODIUM
     Indication: Hypothyroidism
     Route: 048
  13. TYLENOL [Concomitant]
     Active Substance: ACETAMINOPHEN
     Indication: Rheumatoid arthritis
  14. PREGABALIN [Concomitant]
     Active Substance: PREGABALIN
  15. PYRIDOXINE HYDROCHLORIDE [Concomitant]
     Active Substance: PYRIDOXINE HYDROCHLORIDE
     Route: 048
  16. SENOKOT [Concomitant]
     Active Substance: SENNOSIDES
     Route: 048
  17. SPIRIVA [Concomitant]
     Active Substance: TIOTROPIUM BROMIDE MONOHYDRATE
  18. TYLENOL EXTRA STRENGTH [Concomitant]
     Active Substance: ACETAMINOPHEN
  19. VIT E [TOCOPHEROL] [Concomitant]
     Route: 048

REACTIONS (16)
  - Pain [Unknown]
  - Pain in extremity [Unknown]
  - Poor venous access [Unknown]
  - Cataract operation [Unknown]
  - Hypotension [Unknown]
  - Infusion site extravasation [Unknown]
  - Spinal osteoarthritis [Unknown]
  - Systolic hypertension [Unknown]
  - Unevaluable event [Unknown]
  - Anxiety [Unknown]
  - Drug effect less than expected [Unknown]
  - Blood pressure systolic increased [Unknown]
  - Hypertension [Unknown]
  - Off label use [Unknown]
  - Intentional dose omission [Unknown]
  - Therapy partial responder [Unknown]
